FAERS Safety Report 5704081-4 (Version None)
Quarter: 2008Q2

REPORT INFORMATION
  Report Type: 
  Country: None (occurrence: None)
  Receive Date: 20080414
  Receipt Date: 20080409
  Transmission Date: 20081010
  Serious: Yes (Other)
  Sender: FDA-Public Use
  Company Number: US-BRISTOL-MYERS SQUIBB COMPANY-14145296

PATIENT
  Sex: Male

DRUGS (2)
  1. ABILIFY [Suspect]
  2. GEODON [Suspect]

REACTIONS (1)
  - MANIA [None]
